FAERS Safety Report 10791969 (Version 1)
Quarter: 2015Q1

REPORT INFORMATION
  Report Type: Spontaneous
  Country: US (occurrence: US)
  Receive Date: 20150213
  Receipt Date: 20150213
  Transmission Date: 20150721
  Serious: No
  Sender: FDA-Public Use
  Company Number: US-GLAXOSMITHKLINE-A1062647A

PATIENT

DRUGS (3)
  1. NICORETTE FRUIT CHILL [Suspect]
     Active Substance: NICOTINE
     Indication: NICOTINE DEPENDENCE
  2. NICORETTE [Suspect]
     Active Substance: NICOTINE
  3. NICORETTE [Suspect]
     Active Substance: NICOTINE
     Indication: NICOTINE DEPENDENCE

REACTIONS (4)
  - Throat tightness [Recovered/Resolved]
  - Drug administration error [Unknown]
  - Nicotine dependence [Not Recovered/Not Resolved]
  - Therapeutic response unexpected [Unknown]
